FAERS Safety Report 21530501 (Version 1)
Quarter: 2022Q4

REPORT INFORMATION
  Report Type: Spontaneous
  Country: US (occurrence: None)
  Receive Date: 20221028
  Receipt Date: 20221028
  Transmission Date: 20230113
  Serious: No
  Sender: FDA-Public Use
  Company Number: None

PATIENT
  Age: 78 Year
  Sex: Male
  Weight: 70.31 kg

DRUGS (2)
  1. SILDENAFIL CITRATE [Suspect]
     Active Substance: SILDENAFIL CITRATE
     Indication: Erectile dysfunction
     Dates: start: 20221024, end: 20221025
  2. SILDENAFIL CITRATE [Suspect]
     Active Substance: SILDENAFIL CITRATE
     Indication: Erectile dysfunction
     Dates: start: 20221024, end: 20221025

REACTIONS (5)
  - Dizziness [None]
  - Balance disorder [None]
  - Memory impairment [None]
  - Back pain [None]
  - Blood pressure increased [None]

NARRATIVE: CASE EVENT DATE: 20221024
